FAERS Safety Report 18156581 (Version 3)
Quarter: 2020Q4

REPORT INFORMATION
  Report Type: Spontaneous
  Country: US (occurrence: US)
  Receive Date: 20200817
  Receipt Date: 20201013
  Transmission Date: 20210113
  Serious: No
  Sender: FDA-Public Use
  Company Number: US-PFIZER INC-2020317211

PATIENT
  Age: 96 Year
  Sex: Female

DRUGS (1)
  1. IBRANCE [Suspect]
     Active Substance: PALBOCICLIB
     Indication: BREAST CANCER FEMALE
     Dosage: 100 MG, CYCLIC [100 MG ONCE DAILY (QD) X 21 DAYS EVERY (Q) 28 DAYS
     Dates: start: 20200614

REACTIONS (1)
  - Fatigue [Not Recovered/Not Resolved]
